FAERS Safety Report 18332836 (Version 1)
Quarter: 2020Q4

REPORT INFORMATION
  Report Type: Spontaneous
  Country: US (occurrence: US)
  Receive Date: 20201001
  Receipt Date: 20201001
  Transmission Date: 20210113
  Serious: No
  Sender: FDA-Public Use
  Company Number: US-TEVA-2020-US-1830761

PATIENT
  Sex: Female

DRUGS (1)
  1. AUSTEDO [Suspect]
     Active Substance: DEUTETRABENAZINE
     Indication: HUNTINGTON^S DISEASE
     Dosage: 30 MILLIGRAM DAILY; TAKE ONE 9 MG TABLET AND ONE 6 MG TABLET TWICE A DAY
     Route: 065

REACTIONS (2)
  - Insomnia [Unknown]
  - Product dose omission issue [Unknown]
